FAERS Safety Report 9224119 (Version 1)
Quarter: 2013Q2

REPORT INFORMATION
  Report Type: Spontaneous
  Country: US (occurrence: None)
  Receive Date: 20130409
  Receipt Date: 20130409
  Transmission Date: 20140414
  Serious: Yes (Hospitalization, Other)
  Sender: FDA-Public Use
  Company Number: None

PATIENT
  Age: 48 Year
  Sex: Male
  Weight: 141 kg

DRUGS (1)
  1. QSYMIA [Suspect]
     Indication: OBESITY

REACTIONS (4)
  - Diarrhoea [None]
  - Fatigue [None]
  - Jaundice [None]
  - Liver function test abnormal [None]
